FAERS Safety Report 23095967 (Version 5)
Quarter: 2024Q1

REPORT INFORMATION
  Report Type: Report from Study
  Country: US (occurrence: US)
  Receive Date: 20231023
  Receipt Date: 20240322
  Transmission Date: 20240410
  Serious: Yes (Hospitalization, Other)
  Sender: FDA-Public Use
  Company Number: US-UCBSA-2023050326

PATIENT
  Age: 13 Year
  Sex: Male

DRUGS (11)
  1. FINTEPLA [Suspect]
     Active Substance: FENFLURAMINE
     Indication: Lennox-Gastaut syndrome
     Dosage: 2.5 MILLILITER, 2X/DAY (BID)
     Dates: start: 20220809, end: 20221025
  2. FINTEPLA [Suspect]
     Active Substance: FENFLURAMINE
     Dosage: 2.5 MILLILITER, 2X/DAY (BID)
     Dates: start: 20230926, end: 202312
  3. FINTEPLA [Suspect]
     Active Substance: FENFLURAMINE
     Dosage: 1.5 MILLILITER, 2X/DAY (BID)
     Dates: start: 20231206
  4. FINTEPLA [Suspect]
     Active Substance: FENFLURAMINE
     Dosage: 2 ML IN AM AND 1.5 ML IN PM
  5. FINTEPLA [Suspect]
     Active Substance: FENFLURAMINE
     Dosage: 1.5 MILLILITER, 2X/DAY (BID)
  6. FINTEPLA [Suspect]
     Active Substance: FENFLURAMINE
     Dosage: 200 MILLIGRAM, 2X/DAY (BID)
  7. FINTEPLA [Suspect]
     Active Substance: FENFLURAMINE
     Dosage: 1.5 MILLILITER, 2X/DAY (BID)
  8. KEPPRA [Suspect]
     Active Substance: LEVETIRACETAM
     Indication: Seizure
     Dosage: UNK
  9. BRIVIACT [Suspect]
     Active Substance: BRIVARACETAM
     Indication: Seizure
     Dosage: UNK
  10. ONFI [Suspect]
     Active Substance: CLOBAZAM
     Indication: Seizure
     Dosage: UNK
  11. FYCOMPA [Suspect]
     Active Substance: PERAMPANEL
     Indication: Seizure
     Dosage: UNK

REACTIONS (8)
  - Head banging [Recovered/Resolved]
  - Aggression [Recovered/Resolved]
  - Seizure [Recovered/Resolved]
  - Feeling abnormal [Recovered/Resolved]
  - Anger [Recovered/Resolved with Sequelae]
  - Insomnia [Recovered/Resolved]
  - Influenza [Unknown]
  - Product use issue [Unknown]

NARRATIVE: CASE EVENT DATE: 20231011
